FAERS Safety Report 8077681-7 (Version None)
Quarter: 2012Q1

REPORT INFORMATION
  Report Type: 
  Country: None (occurrence: None)
  Receive Date: 20120127
  Receipt Date: 20120125
  Transmission Date: 20120608
  Serious: Yes (Hospitalization, Other)
  Sender: FDA-Public Use
  Company Number: US-VERTEX PHARMACEUTICALS INC.-AE-2012-000253

PATIENT
  Sex: Female

DRUGS (12)
  1. AMBIEN [Concomitant]
     Route: 048
  2. DILANTIN [Concomitant]
  3. PHENERGAN [Concomitant]
     Indication: NAUSEA
     Route: 048
  4. QVAR 40 [Concomitant]
  5. INCIVEK [Suspect]
     Indication: HEPATITIS C
     Route: 048
     Dates: start: 20110101
  6. RIBAVIRIN [Concomitant]
     Indication: HEPATITIS C
     Route: 048
     Dates: start: 20110101
  7. XANAX [Concomitant]
  8. INTERFERON [Concomitant]
     Indication: HEPATITIS C
     Route: 058
     Dates: start: 20110101
  9. RESTASIS [Concomitant]
     Route: 047
  10. SYNTHROID [Concomitant]
  11. XENOPEX [Concomitant]
  12. LISINOPRIL [Concomitant]

REACTIONS (7)
  - DYSPNOEA [None]
  - FATIGUE [None]
  - ASTHENIA [None]
  - PULMONARY EMBOLISM [None]
  - DEEP VEIN THROMBOSIS [None]
  - PAIN [None]
  - ANAEMIA [None]
